FAERS Safety Report 12539490 (Version 1)
Quarter: 2016Q3

REPORT INFORMATION
  Report Type: Spontaneous
  Country: US (occurrence: US)
  Receive Date: 20160708
  Receipt Date: 20160708
  Transmission Date: 20161109
  Serious: No
  Sender: FDA-Public Use
  Company Number: US-BAYER-2016-133575

PATIENT
  Age: 86 Year
  Sex: Female
  Weight: 51.7 kg

DRUGS (1)
  1. MIRALAX [Suspect]
     Active Substance: POLYETHYLENE GLYCOL 3350
     Indication: DYSPEPSIA
     Dosage: 1 DF, QD WITH 8 OUNCES OF WATER
     Route: 048
     Dates: start: 2016

REACTIONS (3)
  - Frequent bowel movements [None]
  - Product use issue [None]
  - Bowel movement irregularity [None]
